FAERS Safety Report 17237113 (Version 6)
Quarter: 2023Q2

REPORT INFORMATION
  Report Type: Spontaneous
  Country: US (occurrence: US)
  Receive Date: 20200106
  Receipt Date: 20230526
  Transmission Date: 20230722
  Serious: Yes (Other)
  Sender: FDA-Public Use
  Company Number: US-PFIZER INC-2019562769

PATIENT
  Age: 59 Year
  Sex: Female
  Weight: 61.224 kg

DRUGS (2)
  1. ARTHROTEC [Suspect]
     Active Substance: DICLOFENAC SODIUM\MISOPROSTOL
     Dosage: 1 DF, 2X/DAY (AS NEEDED)
     Route: 048
  2. LOMOTIL [Concomitant]
     Active Substance: ATROPINE SULFATE\DIPHENOXYLATE HYDROCHLORIDE
     Dosage: 1 DF, DAILY (AS NEEDED FOR 30 DAYS)

REACTIONS (12)
  - Epistaxis [Unknown]
  - Neck pain [Unknown]
  - Back pain [Unknown]
  - Arthralgia [Unknown]
  - Sinusitis [Unknown]
  - Myalgia [Unknown]
  - Headache [Unknown]
  - Joint range of motion decreased [Unknown]
  - Sciatica [Unknown]
  - Foot deformity [Unknown]
  - Therapeutic product effect incomplete [Unknown]
  - Product prescribing error [Unknown]

NARRATIVE: CASE EVENT DATE: 20221201
